FAERS Safety Report 23305585 (Version 5)
Quarter: 2025Q2

REPORT INFORMATION
  Report Type: Report from Study
  Country: GB (occurrence: GB)
  Receive Date: 20231218
  Receipt Date: 20250620
  Transmission Date: 20250717
  Serious: Yes (Hospitalization, Other)
  Sender: SANDOZ
  Company Number: GB-SANDOZ-SDZ2023GB067377

PATIENT
  Sex: Male

DRUGS (1)
  1. OMNITROPE [Suspect]
     Active Substance: SOMATROPIN
     Indication: Pituitary gonadotropin hyperfunction
     Dosage: 1.20 MG, QD
     Route: 058

REACTIONS (5)
  - Hypertension [Not Recovered/Not Resolved]
  - End stage renal disease [Not Recovered/Not Resolved]
  - Hernia [Unknown]
  - Urinary tract infection [Not Recovered/Not Resolved]
  - Product dose omission issue [Unknown]
